FAERS Safety Report 20032524 (Version 1)
Quarter: 2021Q4

REPORT INFORMATION
  Report Type: Spontaneous
  Country: US (occurrence: US)
  Receive Date: 20211103
  Receipt Date: 20211103
  Transmission Date: 20220304
  Serious: No
  Sender: FDA-Public Use
  Company Number: US-BEH-2021137667

PATIENT
  Sex: Female

DRUGS (3)
  1. HIZENTRA [Suspect]
     Active Substance: HUMAN IMMUNOGLOBULIN G
     Dosage: UNK
     Route: 065
  2. HIZENTRA [Suspect]
     Active Substance: HUMAN IMMUNOGLOBULIN G
     Dosage: UNK
     Route: 065
  3. HIZENTRA [Suspect]
     Active Substance: HUMAN IMMUNOGLOBULIN G
     Dosage: UNK
     Route: 065

REACTIONS (9)
  - Urticaria [Unknown]
  - Pruritus [Unknown]
  - Erythema [Unknown]
  - Urticaria [Unknown]
  - Pruritus [Unknown]
  - Erythema [Unknown]
  - Urticaria [Unknown]
  - Pruritus [Unknown]
  - Erythema [Unknown]

NARRATIVE: CASE EVENT DATE: 20211010
